FAERS Safety Report 23930780 (Version 4)
Quarter: 2025Q3

REPORT INFORMATION
  Report Type: Report from Study
  Country: CN (occurrence: CN)
  Receive Date: 20240603
  Receipt Date: 20250818
  Transmission Date: 20251021
  Serious: Yes (Death, Hospitalization, Other)
  Sender: ROCHE
  Company Number: CN-ROCHE-3506139

PATIENT
  Age: 83 Year
  Sex: Male
  Weight: 68.5 kg

DRUGS (49)
  1. POLATUZUMAB VEDOTIN [Suspect]
     Active Substance: POLATUZUMAB VEDOTIN
     Indication: Diffuse large B-cell lymphoma
     Route: 042
     Dates: end: 20231123
  2. GEMCITABINE [Suspect]
     Active Substance: GEMCITABINE
     Indication: Diffuse large B-cell lymphoma
     Route: 042
     Dates: end: 20231123
  3. OXALIPLATIN [Suspect]
     Active Substance: OXALIPLATIN
     Indication: Diffuse large B-cell lymphoma
     Route: 042
     Dates: end: 20231123
  4. TUCIDINOSTAT [Suspect]
     Active Substance: TUCIDINOSTAT
     Indication: Diffuse large B-cell lymphoma
     Route: 048
     Dates: end: 20231123
  5. TISLELIZUMAB [Suspect]
     Active Substance: TISLELIZUMAB
     Indication: Diffuse large B-cell lymphoma
     Route: 042
     Dates: end: 20231124
  6. SELINEXOR [Suspect]
     Active Substance: SELINEXOR
     Indication: Diffuse large B-cell lymphoma
     Route: 048
     Dates: end: 20231122
  7. mirabilite [Concomitant]
     Dates: start: 20231121, end: 20231128
  8. LINEZOLID [Concomitant]
     Active Substance: LINEZOLID
     Route: 048
     Dates: start: 20231123, end: 20231124
  9. LINEZOLID [Concomitant]
     Active Substance: LINEZOLID
     Route: 048
     Dates: start: 20231123, end: 202312
  10. ALBUMIN HUMAN [Concomitant]
     Active Substance: ALBUMIN HUMAN
     Route: 042
     Dates: start: 20231121, end: 20231130
  11. isosorbide dinitrate injection [Concomitant]
     Dates: start: 20231127, end: 20231127
  12. Compound paracetamol tablets [Concomitant]
     Indication: Pyrexia
     Dosage: 1 TABLET
     Route: 048
     Dates: start: 20231121, end: 20231123
  13. Polyethylene glycol modified recombinant human granulocyte colony-stim [Concomitant]
     Route: 058
     Dates: start: 20231121, end: 20231121
  14. Palonosetron hydrochloride capsules [Concomitant]
     Dosage: 1 CAPSULE
     Route: 048
     Dates: start: 20231123, end: 20231123
  15. Palonosetron hydrochloride capsules [Concomitant]
     Dosage: 1 CAPSULE
     Route: 048
     Dates: start: 20231121, end: 202312
  16. Isosorbide nitrate injection [Concomitant]
     Route: 042
     Dates: start: 20231128, end: 20231130
  17. Enteral nutrition powder [Concomitant]
     Route: 048
     Dates: start: 20231128, end: 20231130
  18. Enteral nutrition powder [Concomitant]
     Route: 048
     Dates: start: 20231127, end: 20231127
  19. LIDOCAINE HYDROCHLORIDE [Concomitant]
     Active Substance: LIDOCAINE HYDROCHLORIDE
     Route: 058
     Dates: start: 20231120, end: 20231120
  20. CEFTAZIDIME [Concomitant]
     Active Substance: CEFTAZIDIME
     Route: 042
     Dates: start: 20231120, end: 20231124
  21. ENEMA (SODIUM PHOSPHATE, DIBASIC\SODIUM PHOSPHATE, MONOBASIC) [Concomitant]
     Active Substance: SODIUM PHOSPHATE, DIBASIC\SODIUM PHOSPHATE, MONOBASIC
     Dates: start: 20231121, end: 20231121
  22. ENEMA (SODIUM PHOSPHATE, DIBASIC\SODIUM PHOSPHATE, MONOBASIC) [Concomitant]
     Active Substance: SODIUM PHOSPHATE, DIBASIC\SODIUM PHOSPHATE, MONOBASIC
     Dates: start: 20231123, end: 20231123
  23. ENEMA (SODIUM PHOSPHATE, DIBASIC\SODIUM PHOSPHATE, MONOBASIC) [Concomitant]
     Active Substance: SODIUM PHOSPHATE, DIBASIC\SODIUM PHOSPHATE, MONOBASIC
     Dates: start: 20231125, end: 20231125
  24. Sodium lactate Ringer injection [Concomitant]
     Route: 030
     Dates: start: 20231121, end: 20231124
  25. Sodium bicarbonate injection 5% [Concomitant]
     Route: 042
     Dates: start: 20231121, end: 20231124
  26. METHYLPREDNISOLONE SODIUM SUCCINATE [Concomitant]
     Active Substance: METHYLPREDNISOLONE SODIUM SUCCINATE
     Route: 042
     Dates: start: 20231124, end: 20231128
  27. METHYLPREDNISOLONE SODIUM SUCCINATE [Concomitant]
     Active Substance: METHYLPREDNISOLONE SODIUM SUCCINATE
     Route: 042
     Dates: start: 20231127, end: 20231130
  28. omeprazole enteric-coated capsules [Concomitant]
     Route: 048
     Dates: start: 20231124, end: 20231130
  29. Dihydroxypropylline injection [Concomitant]
     Route: 042
     Dates: start: 20231124, end: 20231124
  30. Linezolid and glucose injection [Concomitant]
     Route: 042
     Dates: start: 20231124, end: 20231130
  31. INSULIN HUMAN [Concomitant]
     Active Substance: INSULIN HUMAN
     Route: 058
     Dates: start: 20231128, end: 20231128
  32. INSULIN HUMAN [Concomitant]
     Active Substance: INSULIN HUMAN
     Route: 058
     Dates: start: 20231129, end: 20231129
  33. INSULIN HUMAN [Concomitant]
     Active Substance: INSULIN HUMAN
     Route: 058
     Dates: start: 20231122, end: 20231122
  34. INSULIN HUMAN [Concomitant]
     Active Substance: INSULIN HUMAN
     Route: 058
     Dates: start: 20231123, end: 20231123
  35. INSULIN HUMAN [Concomitant]
     Active Substance: INSULIN HUMAN
     Route: 058
     Dates: start: 20231125, end: 20231126
  36. INSULIN HUMAN [Concomitant]
     Active Substance: INSULIN HUMAN
     Route: 058
     Dates: start: 20231126, end: 20231126
  37. Recombinant human thrombopoietin injection [Concomitant]
     Route: 058
     Dates: start: 20231129, end: 20231129
  38. PROMETHAZINE HYDROCHLORIDE [Concomitant]
     Active Substance: PROMETHAZINE HYDROCHLORIDE
     Route: 030
     Dates: start: 20231121, end: 20231123
  39. GRANULOCYTE COLONY-STIMULATING FACTOR NOS [Concomitant]
     Active Substance: GRANULOCYTE COLONY-STIMULATING FACTOR NOS
     Route: 058
     Dates: start: 20231121, end: 20231125
  40. NETUPITANT\PALONOSETRON [Concomitant]
     Active Substance: NETUPITANT\PALONOSETRON
     Route: 048
     Dates: start: 20231121, end: 20231130
  41. IMIPENEM AND CILASTATIN SODIUM [Concomitant]
     Active Substance: CILASTATIN SODIUM\IMIPENEM
     Route: 042
     Dates: start: 20231123, end: 20231123
  42. IMIPENEM AND CILASTATIN SODIUM [Concomitant]
     Active Substance: CILASTATIN SODIUM\IMIPENEM
     Route: 042
     Dates: start: 20231124, end: 20231130
  43. ACARBOSE [Concomitant]
     Active Substance: ACARBOSE
     Indication: Hypoglycaemia
     Route: 048
     Dates: start: 20231126, end: 20231130
  44. LACTULOSE [Concomitant]
     Active Substance: LACTULOSE
     Indication: Constipation
     Route: 048
     Dates: start: 20231121, end: 20231121
  45. LEUCOGEN [Concomitant]
     Active Substance: LEUCOGEN
     Route: 048
     Dates: start: 20231122, end: 20231122
  46. CEFACLOR [Concomitant]
     Active Substance: CEFACLOR
     Route: 048
     Dates: start: 20231122, end: 20231125
  47. DEXAMETHASONE SODIUM PHOSPHATE [Concomitant]
     Active Substance: DEXAMETHASONE SODIUM PHOSPHATE
     Route: 042
     Dates: start: 20231122, end: 20231122
  48. INDOMETHACIN [Concomitant]
     Active Substance: INDOMETHACIN
     Route: 048
     Dates: start: 20231122, end: 20231122
  49. ONDANSETRON HYDROCHLORIDE [Concomitant]
     Active Substance: ONDANSETRON HYDROCHLORIDE
     Route: 042
     Dates: start: 20231124, end: 20231124

REACTIONS (21)
  - Multiple organ dysfunction syndrome [Fatal]
  - Aspartate aminotransferase increased [Not Recovered/Not Resolved]
  - Hypochloraemia [Recovered/Resolved]
  - Lymphocyte count decreased [Recovered/Resolved]
  - Platelet count decreased [Recovered/Resolved]
  - Cardiac failure [Not Recovered/Not Resolved]
  - Hypophosphataemia [Not Recovered/Not Resolved]
  - Asthma [Not Recovered/Not Resolved]
  - Hypoxia [Not Recovered/Not Resolved]
  - Alanine aminotransferase increased [Not Recovered/Not Resolved]
  - Blood alkaline phosphatase increased [Not Recovered/Not Resolved]
  - Hypocalcaemia [Not Recovered/Not Resolved]
  - Interstitial lung disease [Not Recovered/Not Resolved]
  - Hemiplegia [Not Recovered/Not Resolved]
  - Septic shock [Not Recovered/Not Resolved]
  - Gamma-glutamyltransferase increased [Not Recovered/Not Resolved]
  - Aortic arteriosclerosis [Not Recovered/Not Resolved]
  - Cholelithiasis [Unknown]
  - Troponin increased [Not Recovered/Not Resolved]
  - Hepatic steatosis [Unknown]
  - Cardiac failure [Not Recovered/Not Resolved]

NARRATIVE: CASE EVENT DATE: 20231101
